FAERS Safety Report 13683236 (Version 1)
Quarter: 2017Q2

REPORT INFORMATION
  Report Type: Spontaneous
  Country: ES (occurrence: ES)
  Receive Date: 20170623
  Receipt Date: 20170623
  Transmission Date: 20170830
  Serious: Yes (Hospitalization, Other)
  Sender: FDA-Public Use
  Company Number: ES-AUROBINDO-AUR-APL-2017-36036

PATIENT
  Age: 76 Year
  Sex: Male

DRUGS (2)
  1. LEVODOPA [Concomitant]
     Active Substance: LEVODOPA
     Indication: PROGRESSIVE SUPRANUCLEAR PALSY
     Dosage: LOW-DOSE
     Route: 065
  2. QUETIAPINE. [Suspect]
     Active Substance: QUETIAPINE
     Indication: PROGRESSIVE SUPRANUCLEAR PALSY
     Route: 065

REACTIONS (1)
  - Psychotic disorder [Recovered/Resolved]
